APPROVED DRUG PRODUCT: DOMEBORO
Active Ingredient: ACETIC ACID, GLACIAL; ALUMINUM ACETATE
Strength: 2%;0.79%
Dosage Form/Route: SOLUTION/DROPS;OTIC
Application: A084476 | Product #001
Applicant: BAYER PHARMACEUTICALS CORP
Approved: Approved Prior to Jan 1, 1982 | RLD: Yes | RS: No | Type: DISCN